FAERS Safety Report 24035394 (Version 1)
Quarter: 2024Q3

REPORT INFORMATION
  Report Type: Spontaneous
  Country: GB (occurrence: GB)
  Receive Date: 20240701
  Receipt Date: 20240701
  Transmission Date: 20241017
  Serious: Yes (Life-Threatening, Hospitalization, Other)
  Sender: JUBILANT
  Company Number: GB-JUBILANT CADISTA PHARMACEUTICALS-2024GB000869

PATIENT
  Age: 65 Year
  Sex: Female
  Weight: 55 kg

DRUGS (6)
  1. CITALOPRAM HYDROBROMIDE [Suspect]
     Active Substance: CITALOPRAM HYDROBROMIDE
     Indication: Stress
     Dosage: 20 MG, ONCE PER DAY
  2. FENTANYL [Suspect]
     Active Substance: FENTANYL\FENTANYL CITRATE
     Indication: Product used for unknown indication
     Dosage: 2 MCG/KG,  UNK
  3. PROPOFOL [Suspect]
     Active Substance: PROPOFOL
     Indication: Product used for unknown indication
     Dosage: 1.5 MG/KG,  UNK
  4. ATRACURIUM [Suspect]
     Active Substance: ATRACURIUM
     Indication: Product used for unknown indication
     Dosage: 0.6 MG/KG,  UNK
  5. NITROUS OXIDE [Suspect]
     Active Substance: NITROUS OXIDE
     Indication: Product used for unknown indication
     Dosage: UNK,  UNK
  6. SEVOFLURANE [Suspect]
     Active Substance: SEVOFLURANE
     Indication: Product used for unknown indication
     Dosage: UNK,  UNK

REACTIONS (3)
  - Ventricular tachycardia [Recovered/Resolved]
  - Electrocardiogram QT prolonged [Recovered/Resolved]
  - Arrhythmia [Recovered/Resolved]
